FAERS Safety Report 5403792-8 (Version None)
Quarter: 2007Q3

REPORT INFORMATION
  Report Type: 
  Country: None (occurrence: None)
  Receive Date: 20070706
  Receipt Date: 20060627
  Transmission Date: 20080115
  Serious: Yes (Hospitalization)
  Sender: FDA-Public Use
  Company Number: 453499

PATIENT
  Age: 52 Year
  Sex: Female

DRUGS (1)
  1. CELLCEPT [Suspect]
     Indication: SECONDARY PROGRESSIVE MULTIPLE SCLEROSIS

REACTIONS (2)
  - KIDNEY INFECTION [None]
  - SYNCOPE [None]
